FAERS Safety Report 10715727 (Version 2)
Quarter: 2015Q1

REPORT INFORMATION
  Report Type: Spontaneous
  Country: DK (occurrence: DK)
  Receive Date: 20150116
  Receipt Date: 20150127
  Transmission Date: 20150721
  Serious: Yes (Hospitalization)
  Sender: FDA-Public Use
  Company Number: DK-JNJFOC-20150104305

PATIENT
  Age: 64 Year
  Sex: Female

DRUGS (4)
  1. MAREVAN [Interacting]
     Active Substance: WARFARIN SODIUM
     Indication: ANTICOAGULANT THERAPY
     Route: 065
  2. BRENTAN [Suspect]
     Active Substance: HYDROCORTISONE\MICONAZOLE
     Route: 048
  3. BRENTAN [Suspect]
     Active Substance: HYDROCORTISONE\MICONAZOLE
     Indication: ORAL CANDIDIASIS
     Dosage: 62.5 (UNIT UNSPECIFIED) PER DOSE, 4 DOSES IN 1 INTERVAL. STRENGTH 20 MG/ML
     Route: 048
     Dates: start: 20141015, end: 20141020
  4. MAREVAN [Interacting]
     Active Substance: WARFARIN SODIUM
     Indication: ANTICOAGULANT THERAPY
     Route: 065
     Dates: start: 201405

REACTIONS (3)
  - Skin haemorrhage [Recovered/Resolved]
  - International normalised ratio increased [Unknown]
  - Drug interaction [Recovered/Resolved]

NARRATIVE: CASE EVENT DATE: 20141018
